FAERS Safety Report 7255161-6 (Version None)
Quarter: 2011Q1

REPORT INFORMATION
  Report Type: 
  Country: None (occurrence: None)
  Receive Date: 20110129
  Receipt Date: 20100203
  Transmission Date: 20110831
  Serious: No
  Sender: FDA-Public Use
  Company Number: US-ABBOTT-10P-163-0624339-00

PATIENT
  Sex: Male
  Weight: 69.462 kg

DRUGS (4)
  1. ASACOL [Concomitant]
     Indication: COLITIS ULCERATIVE
     Route: 048
  2. HUMIRA [Suspect]
     Route: 058
     Dates: start: 20091101, end: 20100101
  3. PREDNISONE [Concomitant]
     Indication: COLITIS ULCERATIVE
     Dosage: 30-40MG
     Route: 048
  4. HUMIRA [Suspect]
     Indication: COLITIS ULCERATIVE
     Route: 058
     Dates: start: 20090801, end: 20091101

REACTIONS (1)
  - DRUG INEFFECTIVE [None]
